FAERS Safety Report 19768162 (Version 1)
Quarter: 2021Q3

REPORT INFORMATION
  Report Type: Other
  Country: FR (occurrence: FR)
  Receive Date: 20210831
  Receipt Date: 20210831
  Transmission Date: 20211014
  Serious: Yes (Other)
  Sender: FDA-Public Use
  Company Number: FR-ROCHE-2899508

PATIENT

DRUGS (1)
  1. MYCOPHENOLATE MOFETIL. [Suspect]
     Active Substance: MYCOPHENOLATE MOFETIL
     Indication: PROPHYLAXIS AGAINST GRAFT VERSUS HOST DISEASE
     Route: 065

REACTIONS (11)
  - Viraemia [Unknown]
  - Aspergillus infection [Unknown]
  - Herpes simplex viraemia [Unknown]
  - Candida infection [Unknown]
  - Graft versus host disease [Unknown]
  - Pneumonia influenzal [Unknown]
  - Bacterial infection [Unknown]
  - Epstein-Barr viraemia [Unknown]
  - Cystitis viral [Unknown]
  - Epstein-Barr virus infection reactivation [Unknown]
  - Cytomegalovirus viraemia [Unknown]
